FAERS Safety Report 24613674 (Version 3)
Quarter: 2024Q4

REPORT INFORMATION
  Report Type: Spontaneous
  Country: JP (occurrence: JP)
  Receive Date: 20241113
  Receipt Date: 20241124
  Transmission Date: 20250115
  Serious: Yes (Hospitalization, Other)
  Sender: ALEXION PHARMACEUTICALS
  Company Number: JP-ASTRAZENECA-240106985_063010_P_1

PATIENT
  Age: 65 Year
  Weight: 59 kg

DRUGS (38)
  1. DAPAGLIFLOZIN [Suspect]
     Active Substance: DAPAGLIFLOZIN
     Indication: Blood pressure increased
     Dosage: DOSE UNKNOWN
  2. DAPAGLIFLOZIN [Suspect]
     Active Substance: DAPAGLIFLOZIN
     Indication: Diabetes mellitus
     Dosage: DOSE UNKNOWN
  3. DAPAGLIFLOZIN [Suspect]
     Active Substance: DAPAGLIFLOZIN
     Indication: Type 2 diabetes mellitus
     Dosage: DOSE UNKNOWN
  4. DAPAGLIFLOZIN [Suspect]
     Active Substance: DAPAGLIFLOZIN
     Dosage: DOSE UNKNOWN
  5. DAPAGLIFLOZIN [Suspect]
     Active Substance: DAPAGLIFLOZIN
  6. DAPAGLIFLOZIN [Suspect]
     Active Substance: DAPAGLIFLOZIN
  7. DAPAGLIFLOZIN [Suspect]
     Active Substance: DAPAGLIFLOZIN
  8. DAPAGLIFLOZIN [Suspect]
     Active Substance: DAPAGLIFLOZIN
  9. CLOPIDOGREL [Concomitant]
     Active Substance: CLOPIDOGREL BISULFATE
     Dosage: 75 MILLIGRAM, QD
  10. CLOPIDOGREL [Concomitant]
     Active Substance: CLOPIDOGREL BISULFATE
     Dosage: 75 MILLIGRAM, QD
  11. VONOPRAZAN FUMARATE [Concomitant]
     Active Substance: VONOPRAZAN FUMARATE
  12. VONOPRAZAN FUMARATE [Concomitant]
     Active Substance: VONOPRAZAN FUMARATE
  13. VONOPRAZAN FUMARATE [Concomitant]
     Active Substance: VONOPRAZAN FUMARATE
  14. VONOPRAZAN FUMARATE [Concomitant]
     Active Substance: VONOPRAZAN FUMARATE
  15. VONOPRAZAN FUMARATE [Concomitant]
     Active Substance: VONOPRAZAN FUMARATE
  16. VONOPRAZAN FUMARATE [Concomitant]
     Active Substance: VONOPRAZAN FUMARATE
  17. VONOPRAZAN FUMARATE [Concomitant]
     Active Substance: VONOPRAZAN FUMARATE
  18. VONOPRAZAN FUMARATE [Concomitant]
     Active Substance: VONOPRAZAN FUMARATE
  19. METHYLCOBALAMIN [Concomitant]
     Active Substance: METHYLCOBALAMIN
  20. METHYLCOBALAMIN [Concomitant]
     Active Substance: METHYLCOBALAMIN
  21. METHYLCOBALAMIN [Concomitant]
     Active Substance: METHYLCOBALAMIN
  22. METHYLCOBALAMIN [Concomitant]
     Active Substance: METHYLCOBALAMIN
  23. METGLUCO [Concomitant]
     Active Substance: METFORMIN HYDROCHLORIDE
     Indication: Diabetes mellitus
  24. METGLUCO [Concomitant]
     Active Substance: METFORMIN HYDROCHLORIDE
  25. METGLUCO [Concomitant]
     Active Substance: METFORMIN HYDROCHLORIDE
  26. METGLUCO [Concomitant]
     Active Substance: METFORMIN HYDROCHLORIDE
  27. NICORANDIL [Concomitant]
     Active Substance: NICORANDIL
  28. NICORANDIL [Concomitant]
     Active Substance: NICORANDIL
  29. NICORANDIL [Concomitant]
     Active Substance: NICORANDIL
  30. NICORANDIL [Concomitant]
     Active Substance: NICORANDIL
  31. NICORANDIL [Concomitant]
     Active Substance: NICORANDIL
  32. NICORANDIL [Concomitant]
     Active Substance: NICORANDIL
  33. NICORANDIL [Concomitant]
     Active Substance: NICORANDIL
  34. NICORANDIL [Concomitant]
     Active Substance: NICORANDIL
  35. HERBALS [Concomitant]
     Active Substance: HERBALS
  36. HERBALS [Concomitant]
     Active Substance: HERBALS
  37. HERBALS [Concomitant]
     Active Substance: HERBALS
  38. HERBALS [Concomitant]
     Active Substance: HERBALS

REACTIONS (2)
  - Haemorrhagic infarction [Recovered/Resolved with Sequelae]
  - Pneumonia aspiration [Recovered/Resolved]
